FAERS Safety Report 24696341 (Version 1)
Quarter: 2024Q4

REPORT INFORMATION
  Report Type: Spontaneous
  Country: ES (occurrence: ES)
  Receive Date: 20241204
  Receipt Date: 20241204
  Transmission Date: 20250114
  Serious: Yes (Life-Threatening, Hospitalization)
  Sender: AMGEN
  Company Number: None

PATIENT
  Age: 76 Year
  Sex: Male

DRUGS (2)
  1. BEVACIZUMAB [Suspect]
     Active Substance: BEVACIZUMAB
     Indication: Malignant anorectal neoplasm
     Dosage: UNK
     Route: 040
     Dates: start: 20240612, end: 20240612
  2. LONSURF [Suspect]
     Active Substance: TIPIRACIL HYDROCHLORIDE\TRIFLURIDINE
     Indication: Malignant anorectal neoplasm
     Dosage: 3 DOSAGE FORM (20 TABLET)
     Route: 048
     Dates: start: 20240612, end: 20240703

REACTIONS (1)
  - Agranulocytosis [Recovered/Resolved]

NARRATIVE: CASE EVENT DATE: 20240701
